FAERS Safety Report 10669578 (Version 3)
Quarter: 2015Q3

REPORT INFORMATION
  Report Type: Report from Study
  Country: US (occurrence: US)
  Receive Date: 20141222
  Receipt Date: 20150807
  Transmission Date: 20151125
  Serious: Yes (Hospitalization)
  Sender: FDA-Public Use
  Company Number: US-SA-2014SA168405

PATIENT
  Age: 54 Year
  Sex: Female

DRUGS (6)
  1. LORAZEPAM. [Concomitant]
     Active Substance: LORAZEPAM
  2. NORCO [Concomitant]
     Active Substance: ACETAMINOPHEN\HYDROCODONE BITARTRATE
  3. AUBAGIO [Suspect]
     Active Substance: TERIFLUNOMIDE
     Indication: MULTIPLE SCLEROSIS
     Route: 048
  4. AUBAGIO [Suspect]
     Active Substance: TERIFLUNOMIDE
     Indication: MULTIPLE SCLEROSIS
     Route: 048
     Dates: start: 20141203
  5. ACETAMINOPHEN. [Concomitant]
     Active Substance: ACETAMINOPHEN
     Indication: RHINORRHOEA
     Route: 065
     Dates: start: 20141220
  6. AMBIEN [Concomitant]
     Active Substance: ZOLPIDEM TARTRATE

REACTIONS (20)
  - Drug interaction [Unknown]
  - Eye discharge [Unknown]
  - Pharyngeal oedema [Unknown]
  - Eye swelling [Unknown]
  - Decreased appetite [Recovering/Resolving]
  - Diarrhoea [Recovering/Resolving]
  - Depression [Unknown]
  - Condition aggravated [Unknown]
  - Abnormal sensation in eye [Unknown]
  - Fluid retention [Unknown]
  - Rhinorrhoea [Recovering/Resolving]
  - Abdominal pain upper [Unknown]
  - Abdominal discomfort [Not Recovered/Not Resolved]
  - Eye irritation [Recovering/Resolving]
  - Drug dose omission [Unknown]
  - Malaise [Unknown]
  - Influenza [Unknown]
  - Cervix carcinoma [Recovered/Resolved]
  - Impaired work ability [Unknown]
  - Headache [Unknown]

NARRATIVE: CASE EVENT DATE: 201411
